FAERS Safety Report 9523167 (Version 2)
Quarter: 2013Q4

REPORT INFORMATION
  Report Type: Spontaneous
  Country: CA (occurrence: CA)
  Receive Date: 20130913
  Receipt Date: 20131024
  Transmission Date: 20140711
  Serious: Yes (Hospitalization)
  Sender: FDA-Public Use
  Company Number: CA-GLAXOSMITHKLINE-A1040917A

PATIENT
  Age: 66 Year
  Sex: Female
  Weight: 66.8 kg

DRUGS (13)
  1. FLOLAN [Suspect]
     Indication: PULMONARY ARTERIAL HYPERTENSION
     Route: 042
     Dates: start: 20121217
  2. FLOLAN DILUENT [Suspect]
     Indication: PULMONARY ARTERIAL HYPERTENSION
     Route: 065
     Dates: start: 20121217
  3. ADCIRCA [Concomitant]
  4. BOSENTAN [Concomitant]
  5. ASA [Concomitant]
  6. AMLODIPINE [Concomitant]
  7. SIMVASTATIN [Concomitant]
  8. PANTOLOC [Concomitant]
  9. METOPROLOL [Concomitant]
  10. RAMIPRIL [Concomitant]
  11. HYDROXYCHLOROQUINE [Concomitant]
  12. FERROUS FUMARATE [Concomitant]
  13. TYLENOL WITH CODEINE [Concomitant]

REACTIONS (3)
  - Medical device complication [Recovered/Resolved]
  - Abdominal hernia [Recovering/Resolving]
  - Abdominal pain upper [Not Recovered/Not Resolved]
